FAERS Safety Report 12486556 (Version 1)
Quarter: 2016Q2

REPORT INFORMATION
  Report Type: Spontaneous
  Country: US (occurrence: US)
  Receive Date: 20160621
  Receipt Date: 20160621
  Transmission Date: 20160815
  Serious: Yes (Death, Hospitalization, Other)
  Sender: FDA-Public Use
  Company Number: US-FRESENIUS MEDICAL CARE RENAL THERAPIES GROUP-PIR201506881

PATIENT
  Age: 63 Year
  Sex: Male

DRUGS (1)
  1. PHOSLO [Suspect]
     Active Substance: CALCIUM ACETATE
     Indication: HYPERPHOSPHATAEMIA
     Route: 065

REACTIONS (8)
  - Confusional state [Unknown]
  - Hiccups [Unknown]
  - Hypophagia [Unknown]
  - Vomiting [Unknown]
  - Cardio-respiratory arrest [None]
  - Ammonia increased [Recovered/Resolved]
  - Asthenia [Unknown]
  - Nausea [Unknown]

NARRATIVE: CASE EVENT DATE: 20150225
